FAERS Safety Report 4524942-1 (Version None)
Quarter: 2004Q4

REPORT INFORMATION
  Report Type: 
  Country: None (occurrence: None)
  Receive Date: 20041208
  Receipt Date: 20041124
  Transmission Date: 20050328
  Serious: Yes (Disabling, Other)
  Sender: FDA-Public Use
  Company Number: 2004097884

PATIENT
  Age: 80 Year
  Sex: Female
  Weight: 63.5036 kg

DRUGS (17)
  1. LIPITOR [Suspect]
     Indication: BLOOD CHOLESTEROL
     Dosage: 40 MG 1 D ORAL
     Route: 048
     Dates: start: 20040401
  2. LEVOTHYROXINE SODIUM [Concomitant]
  3. CETIRIZINE HCL [Concomitant]
  4. ALL OTHER THERAPEUTIC PRODUCTS [Concomitant]
  5. ASCORBIC ACID [Concomitant]
  6. ACETYLSALICYLIC ACID SRT [Concomitant]
  7. NICOTINIC ACID [Concomitant]
  8. GINKGO BILOBA [Concomitant]
  9. CALCIUM WITH VITAMIN D (CALCIUM PHOSPHATE, CALCIUM SODIUM LACTATE, ERG [Concomitant]
  10. B-KOMPLEX ^LECIVA^ (CALCIUM PANTOTHENATE, NICOTINAMIDE, PYRIDOXINE HYD [Concomitant]
  11. SERTRALINE HYDROCHLORIDE [Concomitant]
  12. MONTELUKAST [Concomitant]
  13. TOCOPHEROL CONCENTRATE CAP [Concomitant]
  14. ZINC [Concomitant]
  15. OMEGA-3 TRIGLYCERIDES [Concomitant]
  16. RANITIDINE [Concomitant]
  17. FOLIC ACID [Concomitant]

REACTIONS (2)
  - ASTHENIA [None]
  - SENSATION OF HEAVINESS [None]
